FAERS Safety Report 8885616 (Version 1)
Quarter: 2012Q4

REPORT INFORMATION
  Report Type: 
  Country: CH (occurrence: CH)
  Receive Date: 20121105
  Receipt Date: 20121105
  Transmission Date: 20130627
  Serious: Yes (Hospitalization)
  Sender: FDA-Public Use
  Company Number: PHHY2012CH098739

PATIENT
  Age: 19 Year
  Sex: Male

DRUGS (5)
  1. TRILEPTAL [Suspect]
     Indication: EPILEPSY
     Dosage: 600 mg, BID
     Dates: start: 201007, end: 20110121
  2. TRILEPTAL [Suspect]
     Dosage: 900 (2 DF in morning and 1DF at evening),daily
     Route: 048
     Dates: start: 20110122
  3. URBANYL [Concomitant]
     Dosage: 20 mg, QD
     Route: 048
     Dates: start: 20110121
  4. KEPPRA [Concomitant]
     Dosage: 1 g, BID
     Route: 048
  5. LAMOTRINE MEPHA [Concomitant]
     Dosage: 600 mg, QD
     Route: 048

REACTIONS (9)
  - Cerebellar syndrome [Unknown]
  - Speech disorder [Recovered/Resolved]
  - Coordination abnormal [Unknown]
  - Ataxia [Recovered/Resolved]
  - Nystagmus [Recovered/Resolved]
  - Dizziness [Recovered/Resolved]
  - Sluggishness [Recovered/Resolved]
  - Accidental overdose [Recovered/Resolved]
  - Anticonvulsant drug level increased [Recovered/Resolved]
